FAERS Safety Report 9624709 (Version 2)
Quarter: 2014Q1

REPORT INFORMATION
  Report Type: Spontaneous
  Country: JP (occurrence: None)
  Receive Date: 20131010
  Receipt Date: 20140205
  Transmission Date: 20141002
  Serious: Yes (Death, Hospitalization, Other)
  Sender: FDA-Public Use
  Company Number: CO-OR-JP-2013-113

PATIENT
  Age: 50 Year
  Sex: Female

DRUGS (3)
  1. PREDNISOLONE [Suspect]
     Indication: THROMBOTIC THROMBOCYTOPENIC PURPURA
  2. METHYLPREDNISOLONE [Concomitant]
  3. CYCLOPHOSPHAMIDE [Concomitant]

REACTIONS (7)
  - Thrombotic thrombocytopenic purpura [None]
  - Grand mal convulsion [None]
  - Coma [None]
  - Haemodialysis [None]
  - Bronchopulmonary aspergillosis [None]
  - Antibody test positive [None]
  - Condition aggravated [None]
